FAERS Safety Report 5663240-X (Version None)
Quarter: 2008Q1

REPORT INFORMATION
  Report Type: 
  Country: None (occurrence: None)
  Receive Date: 20080313
  Receipt Date: 20080226
  Transmission Date: 20080703
  Serious: Yes (Hospitalization)
  Sender: FDA-Public Use
  Company Number: GB-BRISTOL-MYERS SQUIBB COMPANY-14113278

PATIENT
  Age: 49 Year
  Sex: Male

DRUGS (6)
  1. FLUPHENAZINE DECANOATE [Suspect]
     Indication: PSYCHOTIC DISORDER
  2. PRIADEL [Suspect]
     Indication: MANIA
     Route: 048
  3. TEGRETOL [Concomitant]
     Indication: PSYCHOTIC DISORDER
  4. DIAZEPAM [Concomitant]
     Indication: PSYCHOTIC DISORDER
  5. PROCYCLIDINE HYDROCHLORIDE 2MG TAB [Concomitant]
  6. ASPIRIN [Concomitant]

REACTIONS (2)
  - SICK SINUS SYNDROME [None]
  - SINUS ARRHYTHMIA [None]
